FAERS Safety Report 24284082 (Version 2)
Quarter: 2025Q1

REPORT INFORMATION
  Report Type: Spontaneous
  Country: US (occurrence: US)
  Receive Date: 20240905
  Receipt Date: 20250212
  Transmission Date: 20250409
  Serious: No
  Sender: BIOGEN
  Company Number: US-BIOGEN-2023BI01241036

PATIENT
  Age: 68 Year
  Sex: Female

DRUGS (3)
  1. SKYCLARYS [Suspect]
     Active Substance: OMAVELOXOLONE
     Indication: Friedreich^s ataxia
     Route: 050
     Dates: start: 20230922
  2. SKYCLARYS [Suspect]
     Active Substance: OMAVELOXOLONE
     Route: 050
     Dates: start: 20230922
  3. SKYCLARYS [Suspect]
     Active Substance: OMAVELOXOLONE
     Route: 050
     Dates: start: 202309

REACTIONS (15)
  - Ear infection [Unknown]
  - Pruritus [Unknown]
  - Feeling abnormal [Unknown]
  - Sensory disturbance [Unknown]
  - Glycosylated haemoglobin abnormal [Unknown]
  - Hypoaesthesia [Unknown]
  - Arthralgia [Unknown]
  - Asthenia [Unknown]
  - Abdominal pain upper [Unknown]
  - Dysuria [Unknown]
  - Urinary tract infection [Unknown]
  - Back pain [Unknown]
  - Underdose [Unknown]
  - Somnolence [Unknown]
  - Arthritis [Unknown]

NARRATIVE: CASE EVENT DATE: 20231001
